FAERS Safety Report 8000380 (Version 3)
Quarter: 2013Q1

REPORT INFORMATION
  Report Type: Spontaneous
  Country: US (occurrence: US)
  Receive Date: 20110621
  Receipt Date: 20130221
  Transmission Date: 20140127
  Serious: No
  Sender: FDA-Public Use
  Company Number: US-ASTRAZENECA-2010SE20459

PATIENT
  Age: 60 Year
  Sex: Female

DRUGS (2)
  1. ATACAND [Suspect]
     Route: 048
  2. FOOD [Interacting]
     Route: 065

REACTIONS (6)
  - Food interaction [Unknown]
  - Paraesthesia [Unknown]
  - Headache [Unknown]
  - Blood pressure increased [Unknown]
  - Tension headache [Unknown]
  - Hypertension [Unknown]
